FAERS Safety Report 8924292 (Version 3)
Quarter: 2013Q2

REPORT INFORMATION
  Report Type: Spontaneous
  Country: US (occurrence: US)
  Receive Date: 20121127
  Receipt Date: 20130405
  Transmission Date: 20140414
  Serious: Yes (Hospitalization, Other)
  Sender: FDA-Public Use
  Company Number: US-BAYER-2012-123732

PATIENT
  Age: 20 Year
  Sex: Female

DRUGS (25)
  1. YAZ [Suspect]
  2. YASMIN [Suspect]
  3. DIAMOX [Concomitant]
     Indication: PAPILLOEDEMA
     Dosage: 500 MG, DAILY
  4. STEROIDS [Concomitant]
  5. NORTRIPTYLINE [Concomitant]
  6. NORTRIPTYLINE [Concomitant]
     Dosage: 10 MG, UNK
  7. DEXAMETHASONE [Concomitant]
  8. NEXIUM [Concomitant]
  9. VENTOLIN [Concomitant]
     Dosage: 90 MCG INHALED
  10. ONDANSETRON [Concomitant]
     Dosage: 8 MG, UNK
  11. PREDNISONE [Concomitant]
     Dosage: 20 MG, UNK
  12. METOCLOPRAMIDE [Concomitant]
     Dosage: 10 MG, UNK
  13. DOXYCYCLINE [Concomitant]
     Dosage: 100 MG, UNK
  14. CYCLOBENZAPRINE [Concomitant]
     Dosage: 10 MG, UNK
  15. PROPRANOLOL [Concomitant]
     Dosage: 20 MG, UNK
  16. MELOXICAM [Concomitant]
     Dosage: 15 MG, UNK
  17. ALPRAZOLAM [Concomitant]
     Dosage: 0.25 MG, UNK
  18. LIDOCAINE W/PRILOCAINE [Concomitant]
  19. VERAPAMIL [Concomitant]
     Dosage: 120 MG, UNK
  20. MAXALT MLT [Concomitant]
     Dosage: 10 MG, UNK
  21. ZOFRAN [Concomitant]
  22. CEFDINIR [Concomitant]
  23. DECADRON [Concomitant]
  24. NORCO [Concomitant]
  25. TYLENOL [Concomitant]

REACTIONS (2)
  - Superior sagittal sinus thrombosis [Recovered/Resolved]
  - Transverse sinus thrombosis [None]
